FAERS Safety Report 18389555 (Version 1)
Quarter: 2020Q4

REPORT INFORMATION
  Report Type: Spontaneous
  Country: US (occurrence: US)
  Receive Date: 20201015
  Receipt Date: 20201015
  Transmission Date: 20210114
  Serious: No
  Sender: FDA-Public Use
  Company Number: US-ASTRAZENECA-2020SF30052

PATIENT
  Sex: Female

DRUGS (2)
  1. BRILINTA [Suspect]
     Active Substance: TICAGRELOR
     Dosage: SOMETIMES ONLY TAKES BRILINTA ONE TIME PER DAY.
     Route: 048
  2. BRILINTA [Suspect]
     Active Substance: TICAGRELOR
     Dosage: USING FROM 5 YEARS, 90 MG TWO TIMES A DAY
     Route: 048

REACTIONS (2)
  - Product use issue [Unknown]
  - Contusion [Unknown]
